FAERS Safety Report 5219169-4 (Version None)
Quarter: 2007Q1

REPORT INFORMATION
  Report Type: 
  Country: None (occurrence: None)
  Receive Date: 20070125
  Receipt Date: 20070117
  Transmission Date: 20070707
  Serious: Yes (Other)
  Sender: FDA-Public Use
  Company Number: GB-GLAXOSMITHKLINE-B0455458A

PATIENT
  Sex: Male

DRUGS (15)
  1. LAMIVUDINE [Suspect]
     Dates: start: 20040101, end: 20040101
  2. EFAVIRENZ [Suspect]
     Indication: HIV INFECTION
     Route: 048
     Dates: start: 20040213, end: 20040511
  3. EMTRICITABINE [Suspect]
     Route: 048
     Dates: start: 20040101
  4. LOPINAVIR [Suspect]
  5. NEVIRAPINE [Suspect]
  6. RITONAVIR [Suspect]
  7. STAVUDINE [Suspect]
  8. TENOFOVIR [Suspect]
     Route: 048
     Dates: start: 20040101
  9. CIPROFLOXACIN [Concomitant]
     Route: 048
     Dates: start: 20040101
  10. AMOXICILLIN + CLAVULANATE POTASSIUM [Concomitant]
     Route: 042
     Dates: start: 20040101, end: 20040101
  11. COMBIVIR [Concomitant]
     Dates: start: 20010824
  12. DAPSONE [Concomitant]
     Dates: start: 20040213, end: 20040227
  13. FLUCONAZOLE [Concomitant]
     Dates: start: 20040101, end: 20040303
  14. METRONIDAZOLE [Concomitant]
     Route: 042
     Dates: start: 20040101
  15. PIPERACILLIN [Concomitant]
     Route: 042
     Dates: start: 20040101, end: 20040101

REACTIONS (3)
  - ANAEMIA [None]
  - HEPATITIS [None]
  - NEUTROPENIA [None]
